FAERS Safety Report 7019624-0 (Version None)
Quarter: 2010Q3

REPORT INFORMATION
  Report Type: 
  Country: None (occurrence: None)
  Receive Date: 20100928
  Receipt Date: 20100928
  Transmission Date: 20110219
  Serious: Yes (Other)
  Sender: FDA-Public Use
  Company Number: None

PATIENT
  Sex: Female
  Weight: 107.9561 kg

DRUGS (1)
  1. MEDROL [Suspect]
     Indication: INFECTED BITES
     Dosage: 4MG 1 DAILY 7 DAYS
     Dates: start: 20100501, end: 20100529

REACTIONS (13)
  - ABDOMINAL DISTENSION [None]
  - CONFUSIONAL STATE [None]
  - DEPRESSION [None]
  - DIZZINESS [None]
  - DYSPNOEA [None]
  - HEADACHE [None]
  - HEART RATE INCREASED [None]
  - HEPATOMEGALY [None]
  - HYPERTENSION [None]
  - INSOMNIA [None]
  - MUSCULAR WEAKNESS [None]
  - VOMITING [None]
  - WEIGHT DECREASED [None]
